FAERS Safety Report 17828257 (Version 1)
Quarter: 2020Q2

REPORT INFORMATION
  Report Type: Spontaneous
  Country: CA (occurrence: CA)
  Receive Date: 20200527
  Receipt Date: 20200527
  Transmission Date: 20200714
  Serious: Yes (Other)
  Sender: FDA-Public Use
  Company Number: CA-TEVA-2020-CA-1239797

PATIENT
  Age: 72 Year
  Sex: Female
  Weight: 50 kg

DRUGS (5)
  1. ANASTROZOLE. [Suspect]
     Active Substance: ANASTROZOLE
     Indication: PRODUCT USED FOR UNKNOWN INDICATION
     Route: 048
  2. EXEMSTANCE [Concomitant]
     Dosage: 25 MILLIGRAM DAILY;
  3. IBRANCE [Concomitant]
     Active Substance: PALBOCICLIB
  4. AFINITOR [Concomitant]
     Active Substance: EVEROLIMUS
     Dosage: 10 MILLIGRAM DAILY;
  5. AFINITOR [Concomitant]
     Active Substance: EVEROLIMUS
     Dosage: 5 MILLIGRAM DAILY;

REACTIONS (2)
  - Malignant neoplasm progression [Unknown]
  - Metastases to liver [Unknown]
